FAERS Safety Report 8202092-0 (Version None)
Quarter: 2012Q1

REPORT INFORMATION
  Report Type: 
  Country: None (occurrence: None)
  Receive Date: 20120312
  Receipt Date: 20120302
  Transmission Date: 20120608
  Serious: Yes (Hospitalization, Other)
  Sender: FDA-Public Use
  Company Number: FR-UCBSA-052690

PATIENT
  Sex: Female

DRUGS (3)
  1. KEPPRA [Suspect]
     Indication: EPILEPSY
     Route: 048
  2. CORTICOSTEROIDS [Concomitant]
     Dates: start: 20111208, end: 20111209
  3. URBANYL [Suspect]
     Indication: EPILEPSY

REACTIONS (3)
  - PREMATURE DELIVERY [None]
  - CAESAREAN SECTION [None]
  - PREGNANCY [None]
